FAERS Safety Report 6388426-0 (Version None)
Quarter: 2009Q4

REPORT INFORMATION
  Report Type: 
  Country: None (occurrence: None)
  Receive Date: 20091001
  Receipt Date: 20091001
  Transmission Date: 20100525
  Serious: Yes (Other)
  Sender: FDA-Public Use
  Company Number: None

PATIENT
  Age: 71 Year
  Sex: Female
  Weight: 119.7496 kg

DRUGS (1)
  1. ZOSYN [Suspect]
     Indication: POST PROCEDURAL INFECTION
     Dosage: 4.5G Q8HR IV
     Route: 042
     Dates: start: 20090821, end: 20090903

REACTIONS (1)
  - THROMBOCYTOPENIA [None]
